FAERS Safety Report 17449543 (Version 1)
Quarter: 2020Q1

REPORT INFORMATION
  Report Type: Spontaneous
  Country: FR (occurrence: FR)
  Receive Date: 20200224
  Receipt Date: 20200224
  Transmission Date: 20200409
  Serious: Yes (Death)
  Sender: FDA-Public Use
  Company Number: FR-ZYDUS-047606

PATIENT
  Age: 34 Year
  Sex: Male

DRUGS (4)
  1. COCAINE/COCAINE HYDROCHLORIDE [Suspect]
     Active Substance: COCAINE HYDROCHLORIDE
     Indication: DRUG ABUSE
     Route: 065
  2. HYDROXYZINE [Suspect]
     Active Substance: HYDROXYZINE HYDROCHLORIDE
     Indication: PRODUCT USED FOR UNKNOWN INDICATION
     Route: 065
  3. TRAMADOL. [Suspect]
     Active Substance: TRAMADOL
     Indication: PRODUCT USED FOR UNKNOWN INDICATION
     Route: 065
  4. FENTANYL/FENTANYL CITRATE [Suspect]
     Active Substance: FENTANYL
     Indication: PRODUCT USED FOR UNKNOWN INDICATION
     Route: 065

REACTIONS (2)
  - Asphyxia [Fatal]
  - Drug abuse [Fatal]

NARRATIVE: CASE EVENT DATE: 20180126
